FAERS Safety Report 17796196 (Version 1)
Quarter: 2020Q2

REPORT INFORMATION
  Report Type: Spontaneous
  Country: GB (occurrence: GB)
  Receive Date: 20200517
  Receipt Date: 20200517
  Transmission Date: 20200714
  Serious: Yes (Other)
  Sender: FDA-Public Use
  Company Number: NVSC2020GB132527

PATIENT
  Age: 64 Year
  Sex: Male

DRUGS (4)
  1. FENTANYL. [Suspect]
     Active Substance: FENTANYL
     Indication: BIOPSY RECTUM
     Dosage: 100 UG, UNKNOWN
     Route: 065
     Dates: start: 20191011
  2. CO-AMOXICLAV [Suspect]
     Active Substance: AMOXICILLIN\CLAVULANATE POTASSIUM
     Indication: BIOPSY RECTUM
     Dosage: 1.2 G, UNKNOWN
     Route: 065
     Dates: start: 20191011
  3. PROPOFOL. [Suspect]
     Active Substance: PROPOFOL
     Indication: INDUCTION OF ANAESTHESIA
     Dosage: 200 MG, UNKNOWN
     Route: 065
     Dates: start: 20191011
  4. ONDANSETRON [Suspect]
     Active Substance: ONDANSETRON
     Indication: BIOPSY RECTUM
     Dosage: 4 MG, UNKNOWN
     Route: 065
     Dates: start: 20191011

REACTIONS (3)
  - Hypotension [Recovered/Resolved]
  - Pulse absent [Recovered/Resolved]
  - Oxygen saturation immeasurable [Recovered/Resolved]

NARRATIVE: CASE EVENT DATE: 20191011
